FAERS Safety Report 6010811-7 (Version None)
Quarter: 2008Q4

REPORT INFORMATION
  Report Type: 
  Country: None (occurrence: None)
  Receive Date: 20081218
  Receipt Date: 20081211
  Transmission Date: 20090506
  Serious: Yes (Hospitalization)
  Sender: FDA-Public Use
  Company Number: PHHY2008FR31408

PATIENT
  Sex: Male

DRUGS (9)
  1. ESIDRIX [Suspect]
     Dosage: 25 MG, QD
     Route: 048
     Dates: start: 20080918, end: 20080927
  2. CYMBALTA [Interacting]
     Indication: DIABETIC NEUROPATHY
     Dosage: 60 MG, QD
     Route: 048
     Dates: start: 20080915, end: 20080925
  3. CYMBALTA [Interacting]
     Indication: BLOOD PRESSURE INADEQUATELY CONTROLLED
     Dosage: 60 MG, QD
     Route: 048
     Dates: start: 20080929
  4. CYMBALTA [Interacting]
     Indication: DEPRESSION
  5. BYETTA [Concomitant]
     Dosage: 2 DF, PER DAY
     Route: 058
     Dates: start: 20080915
  6. AMLOD [Concomitant]
     Dosage: 1 DF, PER DAY
     Route: 048
     Dates: start: 20080918
  7. GLUCOPHAGE [Concomitant]
  8. EUPRESSYL [Concomitant]
  9. ZOCOR [Concomitant]

REACTIONS (4)
  - DRUG INTERACTION [None]
  - FALL [None]
  - HYPOCHLORAEMIA [None]
  - HYPONATRAEMIA [None]
